FAERS Safety Report 9025083 (Version 3)
Quarter: 2013Q1

REPORT INFORMATION
  Report Type: Spontaneous
  Country: US (occurrence: US)
  Receive Date: 20130121
  Receipt Date: 20130220
  Transmission Date: 20140127
  Serious: Yes (Hospitalization, Disabling, Other)
  Sender: FDA-Public Use
  Company Number: US-SANOFI-AVENTIS-2013SA003603

PATIENT
  Age: 60 Year
  Sex: Female

DRUGS (5)
  1. LANTUS SOLOSTAR [Suspect]
     Indication: TYPE 2 DIABETES MELLITUS
     Dosage: DOSE:30 UNIT(S)
     Route: 058
     Dates: start: 2012
  2. LANTUS SOLOSTAR [Suspect]
     Indication: TYPE 2 DIABETES MELLITUS
     Dosage: DOSE:30 UNIT(S)
     Route: 058
     Dates: start: 2012
  3. SOLOSTAR [Suspect]
     Indication: TYPE 2 DIABETES MELLITUS
     Dates: start: 2012
  4. SOLOSTAR [Suspect]
     Indication: TYPE 2 DIABETES MELLITUS
     Dates: start: 2012
  5. CORTICOSTEROIDS [Concomitant]

REACTIONS (14)
  - Staphylococcal infection [Unknown]
  - Device related infection [Unknown]
  - Sepsis [Unknown]
  - Hospitalisation [Unknown]
  - Renal failure [Unknown]
  - Osteoarthritis [Unknown]
  - Body height decreased [Unknown]
  - Lung disorder [Unknown]
  - Hypoglycaemia [Unknown]
  - Palpitations [Unknown]
  - Hyperglycaemia [Unknown]
  - Impaired gastric emptying [Not Recovered/Not Resolved]
  - Blood glucose decreased [Unknown]
  - Injection site bruising [Unknown]
